FAERS Safety Report 20828697 (Version 4)
Quarter: 2024Q3

REPORT INFORMATION
  Report Type: Spontaneous
  Country: US (occurrence: US)
  Receive Date: 20220513
  Receipt Date: 20240913
  Transmission Date: 20241016
  Serious: No
  Sender: INCYTE
  Company Number: US-INCYTE CORPORATION-2022IN004479

PATIENT

DRUGS (2)
  1. JAKAFI [Suspect]
     Active Substance: RUXOLITINIB
     Indication: Polycythaemia vera
     Dosage: 15 MILLIGRAM, BID
     Route: 048
     Dates: start: 202111
  2. JAKAFI [Suspect]
     Active Substance: RUXOLITINIB
     Dosage: 12.5 MILLIGRAM, BID
     Route: 048
     Dates: start: 202202

REACTIONS (6)
  - Mental status changes [Unknown]
  - General physical health deterioration [Unknown]
  - Skin lesion [Recovering/Resolving]
  - Impaired healing [Unknown]
  - Photodermatosis [Not Recovered/Not Resolved]
  - Product dose omission issue [Unknown]
